FAERS Safety Report 19972759 (Version 1)
Quarter: 2021Q4

REPORT INFORMATION
  Report Type: Spontaneous
  Country: US (occurrence: US)
  Receive Date: 20211019
  Receipt Date: 20211019
  Transmission Date: 20220303
  Serious: Yes (Hospitalization)
  Sender: FDA-Public Use
  Company Number: None

PATIENT
  Age: 73 Year
  Sex: Female
  Weight: 57.51 kg

DRUGS (13)
  1. NEULASTA [Suspect]
     Active Substance: PEGFILGRASTIM
     Indication: Pancreatic carcinoma
     Dosage: ?          OTHER FREQUENCY:EVERY 2 WEEKS;
     Route: 058
     Dates: start: 20200225
  2. OXALIPLATIN [Suspect]
     Active Substance: OXALIPLATIN
     Indication: Pancreatic carcinoma
     Dosage: ?          OTHER FREQUENCY:EVERY 2 WEEKS;
     Route: 042
     Dates: start: 20210514
  3. GLIPIZIDE [Concomitant]
     Active Substance: GLIPIZIDE
  4. MIRTAZAPINE [Concomitant]
     Active Substance: MIRTAZAPINE
  5. MORPHINE [Concomitant]
     Active Substance: MORPHINE
  6. OXYCODONE [Concomitant]
     Active Substance: OXYCODONE
  7. TYLENOL [Concomitant]
     Active Substance: ACETAMINOPHEN
  8. CREON [Concomitant]
     Active Substance: PANCRELIPASE AMYLASE\PANCRELIPASE LIPASE\PANCRELIPASE PROTEASE
  9. CYPROHEPTADINE 4MG [Concomitant]
  10. GEMCITABINE 1560GM [Concomitant]
  11. FLUOROURACIL 3840MG [Concomitant]
  12. IRINOTECAN 288MG [Concomitant]
  13. LEUCOVORIN 640MG [Concomitant]

REACTIONS (1)
  - Malaise [None]

NARRATIVE: CASE EVENT DATE: 20210920
